FAERS Safety Report 5782540-6 (Version None)
Quarter: 2008Q2

REPORT INFORMATION
  Report Type: 
  Country: None (occurrence: None)
  Receive Date: 20080623
  Receipt Date: 20080611
  Transmission Date: 20081010
  Serious: Yes (Hospitalization)
  Sender: FDA-Public Use
  Company Number: DE-PFIZER INC-2008049424

PATIENT
  Sex: Female
  Weight: 72 kg

DRUGS (7)
  1. SU-011,248 [Suspect]
     Indication: ADRENOCORTICAL CARCINOMA
     Route: 048
  2. LEVOTHYROXINE SODIUM [Concomitant]
     Dosage: TEXT:150 MICROGRAM
     Route: 048
  3. HYDROCORTISONE [Concomitant]
     Route: 048
  4. PANTOPRAZOL [Concomitant]
     Route: 048
  5. MAGNESIUM [Concomitant]
     Route: 048
  6. VITAMIN D [Concomitant]
     Dosage: TEXT:1000 IE
     Route: 048
  7. MITOTANE [Concomitant]
     Route: 048

REACTIONS (3)
  - DIPLOPIA [None]
  - DIZZINESS [None]
  - SOMNOLENCE [None]
